FAERS Safety Report 4286462-1 (Version None)
Quarter: 2004Q1

REPORT INFORMATION
  Report Type: 
  Country: None (occurrence: None)
  Receive Date: 20040204
  Receipt Date: 20040123
  Transmission Date: 20041129
  Serious: Yes (Death)
  Sender: FDA-Public Use
  Company Number: 163-20785-03120134 (0)

PATIENT
  Age: 64 Year
  Sex: Male

DRUGS (1)
  1. THALOMID [Suspect]
     Indication: THYROID GLAND CANCER
     Dosage: 150 MG, AT BEDTIME, ORAL
     Route: 048
     Dates: start: 20030613, end: 20031022

REACTIONS (2)
  - DISEASE PROGRESSION [None]
  - THYROID GLAND CANCER [None]
